FAERS Safety Report 9638274 (Version 1)
Quarter: 2013Q4

REPORT INFORMATION
  Report Type: Spontaneous
  Country: US (occurrence: US)
  Receive Date: 20131022
  Receipt Date: 20131022
  Transmission Date: 20140711
  Serious: No
  Sender: FDA-Public Use
  Company Number: US-PFIZER INC-2013300520

PATIENT
  Age: 70 Year
  Sex: Female
  Weight: 68.03 kg

DRUGS (3)
  1. CELEBREX [Suspect]
     Indication: ARTHRALGIA
     Dosage: 200 MG, AS NEEDED
     Dates: end: 201305
  2. PREMPRO [Concomitant]
     Indication: HORMONE THERAPY
     Dosage: UNK
  3. PROGESTERONE [Concomitant]
     Indication: HORMONE THERAPY
     Dosage: UNK

REACTIONS (1)
  - Rash [Unknown]
